FAERS Safety Report 7393700-5 (Version None)
Quarter: 2011Q2

REPORT INFORMATION
  Report Type: 
  Country: None (occurrence: None)
  Receive Date: 20110405
  Receipt Date: 20110328
  Transmission Date: 20111010
  Serious: Yes (Hospitalization)
  Sender: FDA-Public Use
  Company Number: US-US-EMD SERONO, INC.-7020766

PATIENT
  Sex: Female

DRUGS (7)
  1. BACLOFEN [Concomitant]
  2. UNSPECIFIED MEDICATIONS [Concomitant]
  3. REBIF [Suspect]
     Indication: RELAPSING-REMITTING MULTIPLE SCLEROSIS
     Route: 058
     Dates: start: 20071218, end: 20100907
  4. ATENOLOL [Concomitant]
  5. ALTACE [Concomitant]
  6. AMLODIPINE BESYLATE [Concomitant]
  7. REBIF [Suspect]
     Route: 058

REACTIONS (1)
  - CENTRAL NERVOUS SYSTEM LESION [None]
